FAERS Safety Report 12381297 (Version 1)
Quarter: 2016Q2

REPORT INFORMATION
  Report Type: Spontaneous
  Country: US (occurrence: None)
  Receive Date: 20160517
  Receipt Date: 20160517
  Transmission Date: 20160815
  Serious: Yes (Hospitalization)
  Sender: FDA-Public Use
  Company Number: None

PATIENT
  Age: 69 Year
  Sex: Female
  Weight: 118.2 kg

DRUGS (2)
  1. WARFARIN [Suspect]
     Active Substance: WARFARIN
     Route: 048
     Dates: start: 20160510, end: 20160512
  2. ENOXAPARIN [Suspect]
     Active Substance: ENOXAPARIN
     Route: 058
     Dates: start: 20160510, end: 20160512

REACTIONS (5)
  - Pelvic haematoma [None]
  - Haemoglobin decreased [None]
  - Muscle haemorrhage [None]
  - Hypotension [None]
  - Abdominal pain [None]

NARRATIVE: CASE EVENT DATE: 20160515
